FAERS Safety Report 5156178-8 (Version None)
Quarter: 2006Q4

REPORT INFORMATION
  Report Type: 
  Country: None (occurrence: None)
  Receive Date: 20061114
  Receipt Date: 20061030
  Transmission Date: 20070319
  Serious: Yes (Life-Threatening, Disabling)
  Sender: FDA-Public Use
  Company Number: OMPQ-PR-0610S-1485

PATIENT
  Age: 45 Year
  Sex: Female

DRUGS (5)
  1. OMNIPAQUE 140 [Suspect]
     Indication: INTRACRANIAL VENOUS SINUS THROMBOSIS
     Dosage: SINGLE DOSE, I.A.
     Route: 013
     Dates: start: 20061001, end: 20061001
  2. INTERFERON ALFA [Concomitant]
  3. FENTANYL [Concomitant]
  4. MIDAZOLAM HYDROCHLORIDE [Concomitant]
  5. HEPARIN [Concomitant]

REACTIONS (12)
  - BLINDNESS [None]
  - CAROTID ARTERY DISEASE [None]
  - DRUG INEFFECTIVE [None]
  - GENERAL PHYSICAL HEALTH DETERIORATION [None]
  - HAEMORRHAGIC CEREBRAL INFARCTION [None]
  - HYPOAESTHESIA [None]
  - INFARCTION [None]
  - LUNG DISORDER [None]
  - MULTI-ORGAN FAILURE [None]
  - RENAL DISORDER [None]
  - SPEECH DISORDER [None]
  - VASOSPASM [None]
